FAERS Safety Report 7623421-2 (Version None)
Quarter: 2011Q3

REPORT INFORMATION
  Report Type: 
  Country: None (occurrence: None)
  Receive Date: 20110720
  Receipt Date: 20110705
  Transmission Date: 20111222
  Serious: Yes (Hospitalization, Other)
  Sender: FDA-Public Use
  Company Number: US-SANOFI-AVENTIS-2011SA044398

PATIENT
  Age: 84 Year
  Sex: Female
  Weight: 52 kg

DRUGS (27)
  1. CARVEDILOL [Concomitant]
  2. WARFARIN SODIUM [Concomitant]
  3. CEFDINIR [Concomitant]
     Dates: start: 20101027
  4. CARVEDILOL [Concomitant]
     Dates: start: 20101030
  5. DIGOXIN [Concomitant]
     Dates: end: 20101106
  6. GUAIFENESIN [Concomitant]
     Dates: start: 20110125
  7. PROPYLTHIOURACIL [Concomitant]
     Dates: start: 20110124
  8. ASPIRIN [Concomitant]
     Dates: start: 20110124, end: 20110202
  9. AZITHROMYCIN [Concomitant]
     Dates: start: 20110124
  10. FAMOTIDINE [Concomitant]
     Dates: start: 20101107, end: 20101120
  11. DIGOXIN [Concomitant]
  12. INDAPAMIDE [Concomitant]
  13. DRONEDARONE HCL [Suspect]
     Indication: ATRIAL FIBRILLATION
     Route: 048
     Dates: start: 20101021, end: 20101026
  14. DILTIAZEM [Concomitant]
  15. HEPARIN [Concomitant]
     Dates: start: 20101109, end: 20101109
  16. VANCOMYCIN [Concomitant]
     Dates: start: 20110125, end: 20110125
  17. FUROSEMIDE [Concomitant]
     Dates: start: 20101101, end: 20101106
  18. POTASSIUM [Concomitant]
     Dates: start: 20101112
  19. FUROSEMIDE [Concomitant]
     Dates: start: 20110124, end: 20110124
  20. DIGOXIN [Concomitant]
     Dates: start: 20110124
  21. TEMAZEPAM [Concomitant]
     Dates: start: 20101107, end: 20101119
  22. HEPARIN [Concomitant]
     Dates: start: 20101115, end: 20101116
  23. BISACODYL [Concomitant]
     Dates: start: 20101110, end: 20101110
  24. CEFTRIAXONE [Concomitant]
     Dates: start: 20110124
  25. PANTOPRAZOLE SODIUM [Concomitant]
     Dates: start: 20110124
  26. SIMVASTATIN [Concomitant]
  27. PROPYLTHIOURACIL [Concomitant]
     Dates: start: 20101107

REACTIONS (3)
  - MUSCULOSKELETAL CHEST PAIN [None]
  - CARDIAC FAILURE [None]
  - RESPIRATORY DISORDER [None]
